FAERS Safety Report 5029958-7 (Version None)
Quarter: 2006Q2

REPORT INFORMATION
  Report Type: 
  Country: None (occurrence: None)
  Receive Date: 20060620
  Receipt Date: 20060613
  Transmission Date: 20061013
  Serious: Yes (Hospitalization)
  Sender: FDA-Public Use
  Company Number: US-MERCK-0606USA02314

PATIENT
  Sex: Female

DRUGS (6)
  1. FOSAMAX [Suspect]
     Route: 048
     Dates: start: 19910101
  2. LEXAPRO [Concomitant]
     Route: 065
     Dates: start: 20051201
  3. XALATAN [Concomitant]
     Route: 047
     Dates: start: 19910101
  4. COMBIVENT [Concomitant]
     Route: 065
     Dates: start: 20060501
  5. BACTRIM DS [Concomitant]
     Route: 065
     Dates: start: 20060531
  6. FLUCONAZOLE [Concomitant]
     Route: 065
     Dates: start: 20060531

REACTIONS (1)
  - HYPONATRAEMIA [None]
